FAERS Safety Report 4691895-5 (Version None)
Quarter: 2005Q2

REPORT INFORMATION
  Report Type: 
  Country: None (occurrence: None)
  Receive Date: 20050608
  Receipt Date: 20040503
  Transmission Date: 20051028
  Serious: Yes (Other)
  Sender: FDA-Public Use
  Company Number: 357686

PATIENT

DRUGS (1)
  1. ACCUTANE [Suspect]
     Dosage: ORAL
     Route: 048
     Dates: start: 20021012, end: 20030401

REACTIONS (2)
  - NO ADVERSE EFFECT [None]
  - PREGNANCY [None]
